FAERS Safety Report 6897974-6 (Version None)
Quarter: 2010Q3

REPORT INFORMATION
  Report Type: 
  Country: None (occurrence: None)
  Receive Date: 20100802
  Receipt Date: 20070816
  Transmission Date: 20110219
  Serious: No
  Sender: FDA-Public Use
  Company Number: US-PFIZER INC-2007069135

PATIENT
  Sex: Female
  Weight: 55.8 kg

DRUGS (3)
  1. LYRICA [Suspect]
     Indication: NEURALGIA
     Dates: start: 20070601
  2. DIOVAN HCT [Concomitant]
     Indication: BLOOD PRESSURE
  3. LUNESTA [Concomitant]

REACTIONS (4)
  - CONSTIPATION [None]
  - DRUG EFFECT DECREASED [None]
  - INTENTIONAL DRUG MISUSE [None]
  - NEUROPATHY PERIPHERAL [None]
